FAERS Safety Report 4711678-7 (Version None)
Quarter: 2005Q2

REPORT INFORMATION
  Report Type: 
  Country: None (occurrence: None)
  Receive Date: 20050629
  Receipt Date: 20050419
  Transmission Date: 20051028
  Serious: No
  Sender: FDA-Public Use
  Company Number: 05P-163-0295859-00

PATIENT
  Age: 53 Year
  Sex: Female
  Weight: 86.1834 kg

DRUGS (4)
  1. HUMIRA [Suspect]
     Indication: CROHN'S DISEASE
     Dosage: 40 MG, 1 IN 2 WK, SUBCUTANEOUS
     Route: 058
     Dates: start: 20041205
  2. HUMIRA [Suspect]
  3. PRASTERONE [Concomitant]
  4. MULTI-VITAMINS [Concomitant]

REACTIONS (4)
  - DRUG INEFFECTIVE [None]
  - INJECTION SITE IRRITATION [None]
  - MEMORY IMPAIRMENT [None]
  - PARAESTHESIA [None]
